FAERS Safety Report 6554519-8 (Version None)
Quarter: 2010Q1

REPORT INFORMATION
  Report Type: 
  Country: None (occurrence: None)
  Receive Date: 20100127
  Receipt Date: 20100119
  Transmission Date: 20100710
  Serious: Yes (Other)
  Sender: FDA-Public Use
  Company Number: US-SANOFI-AVENTIS-2010SA003503

PATIENT
  Age: 63 Year
  Sex: Female

DRUGS (2)
  1. LANTUS [Suspect]
     Indication: TYPE 2 DIABETES MELLITUS
     Dosage: DOSE:22 UNIT(S)
     Route: 058
     Dates: start: 20050101
  2. OPTICLICK [Suspect]

REACTIONS (4)
  - CORONARY ARTERY OCCLUSION [None]
  - EYE HAEMORRHAGE [None]
  - RENAL FAILURE [None]
  - VISUAL ACUITY REDUCED [None]
